FAERS Safety Report 9420054 (Version 3)
Quarter: 2013Q3

REPORT INFORMATION
  Report Type: Spontaneous
  Country: FR (occurrence: FR)
  Receive Date: 20130725
  Receipt Date: 20130924
  Transmission Date: 20140515
  Serious: Yes (Hospitalization, Other)
  Sender: FDA-Public Use
  Company Number: FR-ASTRAZENECA-2013SE55762

PATIENT
  Age: 708 Month
  Sex: Male

DRUGS (10)
  1. CAPRELSA [Suspect]
     Indication: THYROID CANCER METASTATIC
     Route: 048
     Dates: start: 201210, end: 201307
  2. DEROXAT [Suspect]
     Indication: DEPRESSION
     Route: 065
     Dates: start: 201306, end: 201307
  3. RISPERDAL [Suspect]
     Route: 065
  4. DEPAKOTE [Concomitant]
  5. PARIET [Concomitant]
  6. DECTANCYL [Concomitant]
  7. IMOVANE [Concomitant]
  8. LOVENOX [Concomitant]
  9. VENTOLINE [Concomitant]
  10. DIFLUCAN [Concomitant]

REACTIONS (3)
  - Convulsion [Recovered/Resolved]
  - Fall [Recovered/Resolved]
  - Myocarditis [Unknown]
